FAERS Safety Report 6429219-5 (Version None)
Quarter: 2009Q4

REPORT INFORMATION
  Report Type: 
  Country: None (occurrence: None)
  Receive Date: 20091105
  Receipt Date: 20091022
  Transmission Date: 20100525
  Serious: Yes (Hospitalization, Other)
  Sender: FDA-Public Use
  Company Number: PHHY2009BR46062

PATIENT
  Sex: Female
  Weight: 54 kg

DRUGS (9)
  1. FORASEQ [Suspect]
     Indication: ASTHMA
     Dosage: 1 INHALATION WITH EACH ACTIVE PRINCIPLE
  2. FORASEQ [Suspect]
     Indication: CHRONIC OBSTRUCTIVE PULMONARY DISEASE
  3. DUOVENT [Concomitant]
     Indication: DYSPNOEA
     Dosage: 1 DF, QID
  4. DIAMOX SRC [Concomitant]
     Dosage: 1 DF, BID
  5. DIAMOX SRC [Concomitant]
     Dosage: 1 TABLET EVERY 12 HOURS
  6. COLLYRIUM [Concomitant]
     Dosage: 1 DF, QID
  7. COLLYRIUM [Concomitant]
     Dosage: 1 DROP IN EACH EYE, 4 TIMES A DAY
  8. KETOROLAC TROMETHAMINE [Concomitant]
     Dosage: 1 DRP, QID
  9. MAXITROL [Concomitant]
     Dosage: 1 DRP, QID

REACTIONS (15)
  - ANXIETY [None]
  - ASTHMA [None]
  - BRONCHITIS [None]
  - CATARACT [None]
  - CATARACT OPERATION [None]
  - CHEST PAIN [None]
  - CHRONIC OBSTRUCTIVE PULMONARY DISEASE [None]
  - COUGH [None]
  - DEVICE MALFUNCTION [None]
  - DYSPNOEA [None]
  - HYPERTENSION [None]
  - MALAISE [None]
  - NECK PAIN [None]
  - PULMONARY EMBOLISM [None]
  - SINUSITIS [None]
